FAERS Safety Report 10747024 (Version 4)
Quarter: 2015Q2

REPORT INFORMATION
  Report Type: Not Available
  Country: DE (occurrence: DE)
  Receive Date: 20150129
  Receipt Date: 20150521
  Transmission Date: 20150821
  Serious: Yes (Hospitalization, Other)
  Sender: FDA-Public Use
  Company Number: DE-BEH-2015048283

PATIENT
  Age: 59 Year
  Sex: Male
  Weight: 82 kg

DRUGS (22)
  1. VIREAD [Concomitant]
     Active Substance: TENOFOVIR DISOPROXIL FUMARATE
     Dosage: 0-0-1, SINCE ??-NOV-2014
  2. HAEMOCOMPLETTAN P [Suspect]
     Active Substance: FIBRINOGEN HUMAN
     Dosage: ^2 BOTTLES^
     Route: 042
     Dates: start: 20131223
  3. FALITHROM [Concomitant]
     Active Substance: PHENPROCOUMON
     Dosage: ACCORDING INR, TARGET 2.0 - 3.0
  4. PREDNISOLONE. [Concomitant]
     Active Substance: PREDNISOLONE
     Dosage: 10 MG - 0 - 0
  5. COTRIMOXAZOLE [Concomitant]
     Active Substance: SULFAMETHOXAZOLE\TRIMETHOPRIM
     Dosage: 1 - 0 - 0, ON MONDAY AND THURSDAY LIFE-LONG
  6. DELIX [Concomitant]
     Active Substance: RAMIPRIL
     Dosage: 1 - 0 - 0
  7. AQUAPHOR [Concomitant]
     Active Substance: PETROLATUM
     Dosage: 1 - 0 - 0
  8. COLECALCIFEROL [Concomitant]
     Active Substance: CHOLECALCIFEROL
     Dosage: 1 - 0 - 0
  9. ASPIRIN. [Concomitant]
     Active Substance: ASPIRIN
     Dosage: 1 - 0 - 0
  10. OMACOR [Concomitant]
     Active Substance: OMEGA-3-ACID ETHYL ESTERS
     Dosage: 1-0-0, PAUSE
  11. KYBERNIN P [Suspect]
     Active Substance: ANTITHROMBIN III HUMAN
     Dosage: ^1 BOTTLE^
     Route: 042
     Dates: start: 20131223
  12. LACTULOSE. [Concomitant]
     Active Substance: LACTULOSE
     Dosage: 1 MB
  13. KALINOR [Concomitant]
     Active Substance: POTASSIUM CITRATE
     Dosage: 2-1-2
  14. PROGRAF [Concomitant]
     Active Substance: TACROLIMUS\TACROLIMUS ANHYDROUS
     Dosage: 75 MG - 0 - 75 MG, TARGET 8 - 10 NG/ML
  15. SILDENAFIL. [Concomitant]
     Active Substance: SILDENAFIL
     Dosage: 1 - 1 - 1
  16. TORASEMIDE [Concomitant]
     Active Substance: TORSEMIDE
     Dosage: 2 - 2 - 0
  17. PRAVASTATIN [Concomitant]
     Active Substance: PRAVASTATIN\PRAVASTATIN SODIUM
     Dosage: 0 - 0 - 1
  18. MAGNESIUM [Concomitant]
     Active Substance: MAGNESIUM
     Dosage: 0-1-0
  19. BERIPLEX P/N [Suspect]
     Active Substance: COAGULATION FACTOR IX HUMAN\COAGULATION FACTOR VII HUMAN\COAGULATION FACTOR X HUMAN\PROTEIN C\PROTEIN S HUMAN\PROTHROMBIN
     Indication: HAEMORRHAGE
     Dosage: ^4 BOTTLES^
     Route: 042
     Dates: start: 20131223
  20. ACTRAPID I.E. [Concomitant]
  21. CELLCEPT [Concomitant]
     Active Substance: MYCOPHENOLATE MOFETIL\MYCOPHENOLATE MOFETIL HYDROCHLORIDE
     Dosage: 50 MG - 0 - 50 MG/PAUSE
  22. ALLOPURINOL. [Concomitant]
     Active Substance: ALLOPURINOL
     Dosage: 0 - 0 - 1

REACTIONS (4)
  - Hepatic failure [Unknown]
  - Hepatitis B [Not Recovered/Not Resolved]
  - Hepatic function abnormal [Unknown]
  - Suspected transmission of an infectious agent via product [Not Recovered/Not Resolved]

NARRATIVE: CASE EVENT DATE: 20140925
